FAERS Safety Report 7174822-0 (Version None)
Quarter: 2010Q4

REPORT INFORMATION
  Report Type: 
  Country: None (occurrence: None)
  Receive Date: 20101219
  Receipt Date: 20100426
  Transmission Date: 20110411
  Serious: No
  Sender: FDA-Public Use
  Company Number: US-AMGEN-KDL395546

PATIENT

DRUGS (1)
  1. ENBREL [Suspect]
     Indication: RHEUMATOID ARTHRITIS
     Dosage: 50 MG, QWK
     Route: 058
     Dates: start: 20020101

REACTIONS (15)
  - ARTHRALGIA [None]
  - BLOOD IMMUNOGLOBULIN M INCREASED [None]
  - BLOOD PRESSURE INCREASED [None]
  - DIZZINESS [None]
  - DRUG INEFFECTIVE [None]
  - FALL [None]
  - GAIT DISTURBANCE [None]
  - HAEMOGLOBIN DECREASED [None]
  - IMMUNOGLOBULINS ABNORMAL [None]
  - NASAL CONGESTION [None]
  - NERVE COMPRESSION [None]
  - NIGHT SWEATS [None]
  - SINUSITIS [None]
  - SNEEZING [None]
  - WEIGHT DECREASED [None]
